FAERS Safety Report 13581492 (Version 2)
Quarter: 2017Q2

REPORT INFORMATION
  Report Type: Spontaneous
  Country: US (occurrence: US)
  Receive Date: 20170525
  Receipt Date: 20170609
  Transmission Date: 20170830
  Serious: Yes (Life-Threatening, Hospitalization, Other)
  Sender: FDA-Public Use
  Company Number: US-ACCORD-051919

PATIENT
  Age: 54 Year
  Sex: Male
  Weight: 128.6 kg

DRUGS (2)
  1. METHOTREXATE. [Suspect]
     Active Substance: METHOTREXATE
     Indication: CENTRAL NERVOUS SYSTEM LYMPHOMA
     Dosage: REDUCED TO 6 G/M2 FROM A STANDARD 8 G/M2 (TOTAL 14 G). (HIGH DOSE MTX)
     Route: 042
  2. FOLINIC ACID [Concomitant]
     Active Substance: LEUCOVORIN

REACTIONS (8)
  - Encephalopathy [Unknown]
  - Liver function test increased [Recovered/Resolved]
  - Hypotension [Unknown]
  - Bone marrow failure [Recovered/Resolved]
  - Urinary tract infection [Recovered/Resolved]
  - Acute kidney injury [Recovered/Resolved]
  - Nephropathy toxic [Recovered/Resolved]
  - Pulmonary oedema [Recovered/Resolved]
